FAERS Safety Report 23901975 (Version 1)
Quarter: 2024Q2

REPORT INFORMATION
  Report Type: Spontaneous
  Country: FR (occurrence: FR)
  Receive Date: 20240526
  Receipt Date: 20240526
  Transmission Date: 20240715
  Serious: Yes (Other)
  Sender: FDA-Public Use
  Company Number: None

PATIENT
  Age: 38 Year
  Sex: Male

DRUGS (1)
  1. REMICADE [Suspect]
     Active Substance: INFLIXIMAB
     Indication: Crohn^s disease
     Dosage: UNKNOWN DOSE
     Route: 042
     Dates: start: 20191023, end: 20200923

REACTIONS (1)
  - Pulmonary granuloma [Recovered/Resolved]

NARRATIVE: CASE EVENT DATE: 20201101
